FAERS Safety Report 8777308 (Version 2)
Quarter: 2012Q4

REPORT INFORMATION
  Report Type: 
  Country: US (occurrence: US)
  Receive Date: 20120911
  Receipt Date: 20120914
  Transmission Date: 20130627
  Serious: Yes (Other)
  Sender: FDA-Public Use
  Company Number: US-ELI_LILLY_AND_COMPANY-US201208009690

PATIENT
  Sex: Female

DRUGS (1)
  1. HUMALOG LISPRO [Suspect]
     Dosage: UNK, unknown

REACTIONS (6)
  - Blood glucose increased [Unknown]
  - Disorientation [Unknown]
  - Confusional state [Unknown]
  - Incorrect dose administered [Unknown]
  - Device failure [None]
  - Product quality issue [None]
